FAERS Safety Report 25213349 (Version 2)
Quarter: 2025Q2

REPORT INFORMATION
  Report Type: Spontaneous
  Country: CA (occurrence: CA)
  Receive Date: 20250418
  Receipt Date: 20250421
  Transmission Date: 20250717
  Serious: Yes (Other)
  Sender: PFIZER
  Company Number: CA-PFIZER INC-202500071062

PATIENT
  Age: 30 Year
  Sex: Female

DRUGS (7)
  1. METHOTREXATE SODIUM [Suspect]
     Active Substance: METHOTREXATE SODIUM
     Indication: Dermatitis atopic
     Dosage: 25 MG, WEEKLY
     Route: 065
  2. METHOTREXATE SODIUM [Suspect]
     Active Substance: METHOTREXATE SODIUM
     Dosage: 25 MG, WEEKLY
     Route: 042
     Dates: start: 202409
  3. CLOBETASOL PROPIONATE [Concomitant]
     Active Substance: CLOBETASOL PROPIONATE
     Dates: start: 20240415, end: 202409
  4. CYCLOSPORINE [Concomitant]
     Active Substance: CYCLOSPORINE
  5. CIBINQO [Concomitant]
     Active Substance: ABROCITINIB
     Indication: Dermatitis atopic
     Dosage: 100 MG, DAILY
     Route: 048
     Dates: start: 20250325
  6. CIBINQO [Concomitant]
     Active Substance: ABROCITINIB
     Dosage: 200 MG, DAILY FOR 12 MONTHS
     Route: 048
  7. DUPIXENT [Concomitant]
     Active Substance: DUPILUMAB
     Dates: start: 202501, end: 202502

REACTIONS (3)
  - Deafness [Unknown]
  - Drug ineffective for unapproved indication [Unknown]
  - Off label use [Unknown]
